FAERS Safety Report 15579848 (Version 1)
Quarter: 2018Q4

REPORT INFORMATION
  Report Type: Spontaneous
  Country: US (occurrence: US)
  Receive Date: 20181102
  Receipt Date: 20181102
  Transmission Date: 20190205
  Serious: Yes (Other)
  Sender: FDA-Public Use
  Company Number: None

PATIENT
  Age: 62 Year
  Sex: Male
  Weight: 80.5 kg

DRUGS (2)
  1. HEPARIN [Suspect]
     Active Substance: HEPARIN SODIUM
     Indication: GASTROINTESTINAL HAEMORRHAGE
     Route: 058
     Dates: start: 20181023, end: 20181024
  2. HEPARIN [Suspect]
     Active Substance: HEPARIN SODIUM
     Indication: PULMONARY EMBOLISM
     Route: 058
     Dates: start: 20181023, end: 20181024

REACTIONS (3)
  - Urticaria [None]
  - Product substitution [None]
  - Pruritus [None]

NARRATIVE: CASE EVENT DATE: 20181024
